FAERS Safety Report 24952663 (Version 1)
Quarter: 2025Q1

REPORT INFORMATION
  Report Type: Spontaneous
  Country: GB (occurrence: GB)
  Receive Date: 20250210
  Receipt Date: 20250210
  Transmission Date: 20250408
  Serious: Yes (Other)
  Sender: ALKEM
  Company Number: None

PATIENT
  Sex: Male

DRUGS (1)
  1. RILUZOLE [Suspect]
     Active Substance: RILUZOLE
     Indication: Product used for unknown indication
     Route: 065

REACTIONS (1)
  - Illness [Unknown]
